FAERS Safety Report 9661648 (Version 2)
Quarter: 2013Q4

REPORT INFORMATION
  Report Type: Spontaneous
  Country: US (occurrence: US)
  Receive Date: 20131031
  Receipt Date: 20131031
  Transmission Date: 20140711
  Serious: No
  Sender: FDA-Public Use
  Company Number: US-PURDUE-USA-2010-0055229

PATIENT
  Age: 46 Year
  Sex: Female
  Weight: 62.59 kg

DRUGS (3)
  1. OXYCONTIN (NDA 22-272) [Suspect]
     Indication: PAIN
     Dosage: 80 MG, QID
     Dates: start: 20100921
  2. OXYCONTIN (NDA 22-272) [Suspect]
     Indication: COMPLEX REGIONAL PAIN SYNDROME
  3. FENTANYL [Suspect]
     Indication: PRODUCT USED FOR UNKNOWN INDICATION
     Dosage: UNK

REACTIONS (11)
  - Drug withdrawal syndrome [Unknown]
  - Product taste abnormal [Unknown]
  - Pain [Unknown]
  - Heart rate increased [Unknown]
  - Palpitations [Unknown]
  - Inadequate analgesia [Unknown]
  - Therapeutic response delayed [Unknown]
  - Disturbance in attention [Unknown]
  - Anxiety [Recovered/Resolved]
  - Hyperhidrosis [Unknown]
  - Insomnia [Unknown]
